FAERS Safety Report 19061610 (Version 3)
Quarter: 2021Q2

REPORT INFORMATION
  Report Type: Spontaneous
  Country: US (occurrence: US)
  Receive Date: 20210325
  Receipt Date: 20210504
  Transmission Date: 20210717
  Serious: Yes (Other)
  Sender: FDA-Public Use
  Company Number: US-ASTRAZENECA-2021A176525

PATIENT
  Age: 22670 Day
  Sex: Male
  Weight: 67.1 kg

DRUGS (1)
  1. BUDESONIDE AND FORMOTEROL [Suspect]
     Active Substance: BUDESONIDE\FORMOTEROL
     Indication: CHRONIC OBSTRUCTIVE PULMONARY DISEASE
     Dosage: 160/4.5 UG, TWO PUFFS TWICE DAILY
     Route: 055
     Dates: start: 202101

REACTIONS (7)
  - Intentional device misuse [Not Recovered/Not Resolved]
  - Device defective [Unknown]
  - Cerebrovascular accident [Unknown]
  - Device delivery system issue [Unknown]
  - Dyspnoea [Unknown]
  - Product dose omission issue [Not Recovered/Not Resolved]
  - Device malfunction [Unknown]

NARRATIVE: CASE EVENT DATE: 20210128
